FAERS Safety Report 7194377-4 (Version None)
Quarter: 2010Q4

REPORT INFORMATION
  Report Type: 
  Country: None (occurrence: None)
  Receive Date: 20101124
  Receipt Date: 20101022
  Transmission Date: 20110411
  Serious: No
  Sender: FDA-Public Use
  Company Number: 020911

PATIENT

DRUGS (3)
  1. LACOSAMIDE [Suspect]
     Dosage: (150 MG BID) ; (200 MG BID)
  2. KEPPRA [Suspect]
  3. ZONEGRAN [Concomitant]

REACTIONS (1)
  - MYOCLONUS [None]
